FAERS Safety Report 5826352-3 (Version None)
Quarter: 2008Q3

REPORT INFORMATION
  Report Type: 
  Country: None (occurrence: None)
  Receive Date: 20080724
  Receipt Date: 20080712
  Transmission Date: 20090109
  Serious: Yes (Other)
  Sender: FDA-Public Use
  Company Number: 8034770

PATIENT
  Age: 56 Year
  Sex: Female

DRUGS (3)
  1. XYZAL [Suspect]
     Dosage: PO
     Route: 048
     Dates: start: 20080712
  2. BENZODIAZEPINES [Suspect]
     Dates: start: 20080712
  3. ANTIPSYCHOTICS [Suspect]
     Dates: start: 20080712

REACTIONS (3)
  - DRUG TOXICITY [None]
  - SOMNOLENCE [None]
  - SUICIDAL BEHAVIOUR [None]
